FAERS Safety Report 16980495 (Version 1)
Quarter: 2019Q4

REPORT INFORMATION
  Report Type: Spontaneous
  Country: US (occurrence: US)
  Receive Date: 20191031
  Receipt Date: 20191031
  Transmission Date: 20200122
  Serious: No
  Sender: FDA-Public Use
  Company Number: US-BAUSCH-BL-2019-057922

PATIENT
  Sex: Male

DRUGS (2)
  1. BENZALKONIUM CHLORIDE. [Suspect]
     Active Substance: BENZALKONIUM CHLORIDE
     Indication: OCULAR HYPERAEMIA
     Route: 047
  2. LUMIFY [Suspect]
     Active Substance: BRIMONIDINE TARTRATE
     Indication: OCULAR HYPERAEMIA
     Route: 047

REACTIONS (5)
  - Ocular hyperaemia [Unknown]
  - Therapeutic product effect incomplete [Unknown]
  - Eye irritation [Unknown]
  - Dry eye [Unknown]
  - Condition aggravated [Unknown]
